FAERS Safety Report 9910865 (Version 3)
Quarter: 2014Q2

REPORT INFORMATION
  Report Type: Spontaneous
  Country: IT (occurrence: IT)
  Receive Date: 20140219
  Receipt Date: 20140417
  Transmission Date: 20141212
  Serious: Yes (Hospitalization)
  Sender: FDA-Public Use
  Company Number: IT-WATSON-2014-02689

PATIENT
  Age: 53 Year
  Sex: Female

DRUGS (5)
  1. LORAZEPAM (UNKNOWN) [Suspect]
     Indication: DRUG ABUSE
     Dosage: 60 GTT, TOTAL
     Route: 048
     Dates: start: 20140107, end: 20140107
  2. LORAZEPAM (UNKNOWN) [Suspect]
     Dosage: 20 GTT, DAILY
     Route: 048
  3. STILNOX [Suspect]
     Indication: DRUG ABUSE
     Dosage: 100 MG, TOTAL
     Route: 048
     Dates: start: 20140107, end: 20140107
  4. STILNOX [Suspect]
     Dosage: 10 MG, DAILY
     Route: 048
  5. SEROQUEL [Concomitant]
     Indication: PRODUCT USED FOR UNKNOWN INDICATION
     Dosage: 300 MG, DAILY
     Route: 048

REACTIONS (2)
  - Sopor [Recovered/Resolved]
  - Drug abuse [Recovered/Resolved]
